FAERS Safety Report 7724122-2 (Version None)
Quarter: 2011Q3

REPORT INFORMATION
  Report Type: 
  Country: None (occurrence: None)
  Receive Date: 20110901
  Receipt Date: 20110727
  Transmission Date: 20111222
  Serious: Yes (Other)
  Sender: FDA-Public Use
  Company Number: US-NAPPMUNDI-USA-2011-0072678

PATIENT
  Age: 23 Year
  Sex: Female

DRUGS (1)
  1. OXYCONTIN [Suspect]
     Indication: DRUG ABUSE

REACTIONS (5)
  - SUICIDE ATTEMPT [None]
  - INJECTION SITE HAEMATOMA [None]
  - DRUG DEPENDENCE [None]
  - FOAMING AT MOUTH [None]
  - SUBSTANCE ABUSE [None]
